FAERS Safety Report 16819033 (Version 1)
Quarter: 2019Q3

REPORT INFORMATION
  Report Type: Spontaneous
  Country: GR (occurrence: GR)
  Receive Date: 20190917
  Receipt Date: 20190917
  Transmission Date: 20191005
  Serious: Yes (Death)
  Sender: FDA-Public Use
  Company Number: GR-INDIVIOR EUROPE LIMITED-INDV-121555-2019

PATIENT
  Age: 40 Year
  Sex: Female

DRUGS (1)
  1. SUBUTEX [Suspect]
     Active Substance: BUPRENORPHINE HYDROCHLORIDE
     Indication: PRODUCT USED FOR UNKNOWN INDICATION
     Dosage: 18 MILLIGRAM, Q24H
     Route: 060
     Dates: start: 20051102, end: 20060605

REACTIONS (1)
  - Tuberculosis [Fatal]

NARRATIVE: CASE EVENT DATE: 20060522
